FAERS Safety Report 10740647 (Version 3)
Quarter: 2015Q1

REPORT INFORMATION
  Report Type: Report from Study
  Country: CA (occurrence: JP)
  Receive Date: 20150127
  Receipt Date: 20150223
  Transmission Date: 20150721
  Serious: Yes (Death, Hospitalization)
  Sender: FDA-Public Use
  Company Number: JP-CELGENE-JPN-2015012228

PATIENT
  Age: 79 Year
  Sex: Male
  Weight: 54 kg

DRUGS (18)
  1. ABRAXANE [Suspect]
     Active Substance: PACLITAXEL
     Indication: METASTATIC GASTRIC CANCER
     Dosage: 407 MILLIGRAM
     Route: 041
     Dates: start: 20141201, end: 20141222
  2. ZYLORIC [Concomitant]
     Active Substance: ALLOPURINOL
     Indication: HYPERURICAEMIA
     Route: 048
     Dates: end: 20150109
  3. TORONORM [Concomitant]
     Indication: HYPERURICAEMIA
     Dosage: 50 MILLIGRAM
     Route: 048
     Dates: end: 20150109
  4. IRBETAN [Concomitant]
     Active Substance: IRBESARTAN
     Indication: HYPERTENSION
     Dosage: .2 MILLIGRAM
     Route: 048
     Dates: end: 20150109
  5. GOSHAJINKIGAN [Concomitant]
     Active Substance: HERBALS
     Indication: PERIPHERAL SENSORY NEUROPATHY
     Dosage: 75 GRAM
     Route: 048
     Dates: start: 20141226, end: 20150109
  6. MAGLAX [Concomitant]
     Active Substance: MAGNESIUM OXIDE
     Indication: CONSTIPATION
     Dosage: 100 MILLIGRAM
     Route: 048
     Dates: end: 20150109
  7. CALBLOCK [Concomitant]
     Active Substance: AZELNIDIPINE
     Indication: HYPERTENSION
     Dosage: 5 MILLIGRAM
     Route: 048
     Dates: end: 20150109
  8. TRAZENTA [Concomitant]
     Active Substance: LINAGLIPTIN
     Indication: DIABETES MELLITUS
     Route: 048
     Dates: end: 20150101
  9. HARNAL [Concomitant]
     Active Substance: TAMSULOSIN HYDROCHLORIDE
     Indication: BENIGN PROSTATIC HYPERPLASIA
     Dosage: 10 MILLIGRAM
     Route: 048
     Dates: end: 20150109
  10. BIOFERMIN [Concomitant]
     Active Substance: BACILLUS SUBTILIS\LACTOBACILLUS ACIDOPHILUS\STREPTOCOCCUS FAECAIS
     Indication: CONSTIPATION
     Dosage: 15 MILLIGRAM
     Route: 048
     Dates: end: 20150109
  11. URINORM [Concomitant]
     Active Substance: BENZBROMARONE
     Indication: HYPERURICAEMIA
     Dosage: 50 MILLIGRAM
     Route: 048
     Dates: end: 20150109
  12. GLUFAST [Concomitant]
     Active Substance: MITIGLINIDE
     Indication: DIABETES MELLITUS
     Dosage: 500 MILLIGRAM
     Route: 048
     Dates: end: 20150101
  13. OXYGEN. [Concomitant]
     Active Substance: OXYGEN
     Indication: OXYGEN SATURATION DECREASED
     Route: 065
     Dates: start: 20150110
  14. BERIZYM [Concomitant]
     Active Substance: CELLULASE\DIASTASE\LIPASE
     Indication: PRODUCT USED FOR UNKNOWN INDICATION
     Dosage: 3 DOSAGE FORMS
     Route: 048
     Dates: end: 20150109
  15. ARGAMATE [Concomitant]
     Active Substance: POLYSTYRENE
     Indication: CHRONIC KIDNEY DISEASE
     Dosage: 3 DOSAGE FORMS
     Route: 048
     Dates: end: 20150109
  16. TAKELDA [Concomitant]
     Indication: CEREBRAL INFARCTION
     Dosage: 16 MILLIGRAM
     Route: 048
     Dates: end: 20150109
  17. INSULIN [Concomitant]
     Active Substance: INSULIN NOS
     Indication: HYPERGLYCAEMIA
     Route: 065
     Dates: start: 20150112
  18. LASIX [Concomitant]
     Active Substance: FUROSEMIDE
     Indication: HYPERTENSION
     Dosage: 2 TABLET
     Route: 048
     Dates: end: 20150109

REACTIONS (1)
  - Pneumonia influenzal [Fatal]

NARRATIVE: CASE EVENT DATE: 20150101
